FAERS Safety Report 6062546-2 (Version None)
Quarter: 2009Q1

REPORT INFORMATION
  Report Type: 
  Country: None (occurrence: None)
  Receive Date: 20090202
  Receipt Date: 20090202
  Transmission Date: 20090719
  Serious: Yes (Other)
  Sender: FDA-Public Use
  Company Number: None

PATIENT
  Sex: Female
  Weight: 89.3586 kg

DRUGS (1)
  1. HEPARIN [Suspect]
     Indication: LYME DISEASE
     Dosage: 5ML= 100 UNITS DAILY IV APPROX 20 DAYS
     Route: 041
     Dates: start: 20090108, end: 20090128

REACTIONS (2)
  - FATIGUE [None]
  - PRODUCT QUALITY ISSUE [None]
